FAERS Safety Report 5376436-1 (Version None)
Quarter: 2007Q3

REPORT INFORMATION
  Report Type: 
  Country: None (occurrence: None)
  Receive Date: 20070702
  Receipt Date: 20070622
  Transmission Date: 20080115
  Serious: Yes (Hospitalization)
  Sender: FDA-Public Use
  Company Number: PFIZER INC-2007051898

PATIENT
  Age: 47 Year
  Sex: Female

DRUGS (1)
  1. ZITHROMAX [Suspect]
     Indication: COUGH
     Route: 048
     Dates: start: 20070412, end: 20070401

REACTIONS (1)
  - OLIGURIA [None]
